FAERS Safety Report 14749555 (Version 1)
Quarter: 2018Q2

REPORT INFORMATION
  Report Type: Spontaneous
  Country: US (occurrence: US)
  Receive Date: 20180411
  Receipt Date: 20180411
  Transmission Date: 20180711
  Serious: No
  Sender: FDA-Public Use
  Company Number: US-TEVA-2018-US-879524

PATIENT
  Age: 47 Year
  Sex: Female
  Weight: 92.97 kg

DRUGS (2)
  1. MUCUS ER [Suspect]
     Active Substance: GUAIFENESIN
     Indication: COUGH
     Dosage: 2400 MILLIGRAM DAILY;
     Route: 048
     Dates: start: 20180324, end: 20180330
  2. MUCUS ER [Suspect]
     Active Substance: GUAIFENESIN
     Indication: UPPER RESPIRATORY TRACT CONGESTION

REACTIONS (1)
  - Drug ineffective [Unknown]

NARRATIVE: CASE EVENT DATE: 20180324
